FAERS Safety Report 11023343 (Version 1)
Quarter: 2015Q2

REPORT INFORMATION
  Report Type: Spontaneous
  Country: US (occurrence: US)
  Receive Date: 20150413
  Receipt Date: 20150413
  Transmission Date: 20150821
  Serious: No
  Sender: FDA-Public Use
  Company Number: PHEH2015US002505

PATIENT
  Sex: Female

DRUGS (8)
  1. TASIGNA [Suspect]
     Active Substance: NILOTINIB
     Dosage: 100 MG, (HALF THE DOSE AS OF THE INITIAL), BID (1030AM AND 1030PM)
     Route: 065
  2. MAGNESIUM [Concomitant]
     Active Substance: MAGNESIUM
     Indication: SUPPLEMENTATION THERAPY
     Dosage: UNK
     Route: 065
  3. CALCIUM [Concomitant]
     Active Substance: CALCIUM
     Indication: SUPPLEMENTATION THERAPY
     Dosage: UNK
     Route: 065
  4. BIOTIN [Concomitant]
     Active Substance: BIOTIN
     Indication: SUPPLEMENTATION THERAPY
     Dosage: UNK
     Route: 065
  5. LEVOTHYROXINE [Concomitant]
     Active Substance: LEVOTHYROXINE
     Indication: THYROID DISORDER
     Dosage: UNK
     Route: 048
  6. VITAMIN B12 [Concomitant]
     Active Substance: CYANOCOBALAMIN
     Indication: SUPPLEMENTATION THERAPY
     Route: 065
  7. TASIGNA [Suspect]
     Active Substance: NILOTINIB
     Indication: PRODUCT USED FOR UNKNOWN INDICATION
     Dosage: 200 MG, BID
     Route: 048
  8. VITAMIN D3 [Concomitant]
     Active Substance: CHOLECALCIFEROL
     Indication: SUPPLEMENTATION THERAPY
     Route: 065

REACTIONS (8)
  - Rash [Unknown]
  - Blood pressure increased [Unknown]
  - Erythema [Unknown]
  - Hepatic enzyme increased [Not Recovered/Not Resolved]
  - Temperature intolerance [Unknown]
  - Pain of skin [Unknown]
  - Diarrhoea [Unknown]
  - Headache [Unknown]
